FAERS Safety Report 12628338 (Version 1)
Quarter: 2016Q3

REPORT INFORMATION
  Report Type: Spontaneous
  Country: US (occurrence: None)
  Receive Date: 20160805
  Receipt Date: 20160805
  Transmission Date: 20161109
  Serious: No
  Sender: FDA-Public Use
  Company Number: None

PATIENT

DRUGS (2)
  1. CHLORHEXIDINE GLUCONATE. [Suspect]
     Active Substance: CHLORHEXIDINE GLUCONATE
     Dosage: SOLUTION  ORAL RINSE  0.12% UNIT DOSE CUP 15 ML
     Route: 048
  2. LIDOCAINE HYDROCHLORIDE. [Suspect]
     Active Substance: LIDOCAINE HYDROCHLORIDE
     Dosage: SOLUTION ORAL 2% UNIT DOSE CUP 15 ML
     Route: 048

REACTIONS (1)
  - Product packaging confusion [None]
